FAERS Safety Report 12486960 (Version 1)
Quarter: 2016Q2

REPORT INFORMATION
  Report Type: Spontaneous
  Country: US (occurrence: None)
  Receive Date: 20160621
  Receipt Date: 20160621
  Transmission Date: 20160815
  Serious: No
  Sender: FDA-Public Use
  Company Number: None

PATIENT
  Sex: Male

DRUGS (4)
  1. METFORMIN [Suspect]
     Active Substance: METFORMIN HYDROCHLORIDE
  2. HUMALOG [Suspect]
     Active Substance: INSULIN LISPRO
  3. SIMVASTATIN. [Suspect]
     Active Substance: SIMVASTATIN
  4. INVOKANA [Suspect]
     Active Substance: CANAGLIFLOZIN

REACTIONS (1)
  - Weight decreased [None]
